FAERS Safety Report 5812772-X (Version None)
Quarter: 2008Q3

REPORT INFORMATION
  Report Type: 
  Country: None (occurrence: None)
  Receive Date: 20080717
  Receipt Date: 20080710
  Transmission Date: 20090109
  Serious: Yes (Other)
  Sender: FDA-Public Use
  Company Number: US-AVENTIS-200814207US

PATIENT
  Sex: Female
  Weight: 78 kg

DRUGS (5)
  1. LOVENOX [Suspect]
     Route: 058
     Dates: start: 20080708, end: 20080710
  2. PRENATAL VITAMINS                  /01549301/ [Concomitant]
     Dosage: DOSE: UNK
  3. ASPIRIN [Concomitant]
  4. TYLENOL [Concomitant]
  5. COUMADIN [Concomitant]
     Dosage: DOSE: UNK
     Dates: start: 20080301, end: 20080701

REACTIONS (1)
  - ABORTION SPONTANEOUS [None]
